FAERS Safety Report 8296455-5 (Version None)
Quarter: 2012Q2

REPORT INFORMATION
  Report Type: 
  Country: None (occurrence: None)
  Receive Date: 20120418
  Receipt Date: 20120413
  Transmission Date: 20120825
  Serious: Yes (Other)
  Sender: FDA-Public Use
  Company Number: JP-PFIZER INC-2012093157

PATIENT
  Age: 55 Year
  Sex: Female

DRUGS (3)
  1. VALPROATE SODIUM [Concomitant]
  2. AMITRIPTYLINE HCL [Concomitant]
  3. LYRICA [Suspect]
     Indication: MIGRAINE
     Dosage: 25 MG, 1X/DAY
     Route: 048
     Dates: start: 20111201

REACTIONS (1)
  - LARYNGEAL OEDEMA [None]
